FAERS Safety Report 10494990 (Version 1)
Quarter: 2014Q3

REPORT INFORMATION
  Report Type: Spontaneous
  Country: US (occurrence: None)
  Receive Date: 20140815
  Receipt Date: 20140815
  Transmission Date: 20150326
  Serious: Yes (Hospitalization, Other)
  Sender: FDA-Public Use
  Company Number: ADR-2014-00156

PATIENT
  Age: 65 Year
  Sex: Male

DRUGS (2)
  1. BACLOFEN INTRATHECAL [Suspect]
     Active Substance: BACLOFEN
     Indication: PAIN
  2. MORPHINE INTRATHECAL [Suspect]
     Active Substance: MORPHINE
     Indication: PAIN

REACTIONS (5)
  - Lethargy [None]
  - Hypotension [None]
  - Mental status changes [None]
  - Toxicity to various agents [None]
  - Bradycardia [None]

NARRATIVE: CASE EVENT DATE: 20140116
